FAERS Safety Report 16276189 (Version 1)
Quarter: 2019Q2

REPORT INFORMATION
  Report Type: Spontaneous
  Country: US (occurrence: US)
  Receive Date: 20190506
  Receipt Date: 20190506
  Transmission Date: 20190711
  Serious: No
  Sender: FDA-Public Use
  Company Number: US-SA-2019SA122407

PATIENT
  Sex: Female

DRUGS (1)
  1. PRALUENT [Suspect]
     Active Substance: ALIROCUMAB
     Dosage: 1 DF, QOW
     Route: 058

REACTIONS (3)
  - Cough [Unknown]
  - Malaise [Unknown]
  - Nasopharyngitis [Unknown]
